FAERS Safety Report 12202976 (Version 1)
Quarter: 2016Q1

REPORT INFORMATION
  Report Type: Spontaneous
  Country: FR (occurrence: FR)
  Receive Date: 20160323
  Receipt Date: 20160323
  Transmission Date: 20160526
  Serious: Yes (Hospitalization)
  Sender: FDA-Public Use
  Company Number: FR-ROCHE-1728858

PATIENT
  Age: 54 Year
  Sex: Male

DRUGS (10)
  1. VALIUM [Concomitant]
     Active Substance: DIAZEPAM
  2. BISOCE [Concomitant]
     Active Substance: BISOPROLOL
  3. PREVISCAN (FRANCE) [Concomitant]
     Active Substance: FLUINDIONE
  4. SEROPLEX [Concomitant]
     Active Substance: ESCITALOPRAM OXALATE
  5. XELODA [Suspect]
     Active Substance: CAPECITABINE
     Indication: COLON NEOPLASM
     Route: 048
     Dates: start: 20150930
  6. SIFROL [Concomitant]
     Active Substance: PRAMIPEXOLE
  7. ALPRAZOLAM. [Concomitant]
     Active Substance: ALPRAZOLAM
  8. PARACETAMOL [Concomitant]
     Active Substance: ACETAMINOPHEN
  9. STALEVO (FRANCE) [Concomitant]
  10. INEXIUM [Concomitant]
     Active Substance: ESOMEPRAZOLE

REACTIONS (1)
  - Parkinson^s disease [Not Recovered/Not Resolved]

NARRATIVE: CASE EVENT DATE: 20151005
